FAERS Safety Report 9621427 (Version 1)
Quarter: 2013Q4

REPORT INFORMATION
  Report Type: Spontaneous
  Country: US (occurrence: US)
  Receive Date: 20131015
  Receipt Date: 20131015
  Transmission Date: 20140711
  Serious: No
  Sender: FDA-Public Use
  Company Number: US-PFIZER INC-2013291987

PATIENT
  Sex: Female

DRUGS (2)
  1. EFFEXOR [Suspect]
     Dosage: 75 MG, 2X/DAY
  2. EFFEXOR XR [Suspect]
     Dosage: 150 MG, 2X/DAY

REACTIONS (4)
  - Therapeutic response unexpected [Unknown]
  - Back pain [Recovered/Resolved]
  - Incorrect dose administered [Unknown]
  - Drug effect incomplete [Unknown]
